FAERS Safety Report 16305068 (Version 1)
Quarter: 2019Q2

REPORT INFORMATION
  Report Type: Spontaneous
  Country: US (occurrence: US)
  Receive Date: 20190510
  Receipt Date: 20190510
  Transmission Date: 20190711
  Serious: Yes (Other)
  Sender: FDA-Public Use
  Company Number: None

PATIENT
  Age: 67 Year
  Sex: Female
  Weight: 58.5 kg

DRUGS (4)
  1. CEREFOLIN [Concomitant]
     Active Substance: CYANOCOBALAMIN CO-57\LEVOMEFOLATE CALCIUM\PYRIDOXINE HYDROCHLORIDE\RIBOFLAVIN
  2. VITAMIN C [Concomitant]
     Active Substance: ASCORBIC ACID
  3. LAMICTAL [Concomitant]
     Active Substance: LAMOTRIGINE
  4. COLGATE TOOTHPASTE [Suspect]
     Active Substance: SODIUM MONOFLUOROPHOSPHATE
     Indication: DENTAL CARE
     Dosage: ?          OTHER ROUTE:TOOTHPASTE?
     Dates: start: 20181201, end: 20181201

REACTIONS (1)
  - Tongue discomfort [None]

NARRATIVE: CASE EVENT DATE: 20181201
